FAERS Safety Report 8895248 (Version 1)
Quarter: 2012Q4

REPORT INFORMATION
  Report Type: 
  Country: GB (occurrence: GB)
  Receive Date: 20121107
  Receipt Date: 20121107
  Transmission Date: 20130627
  Serious: Yes (Death, Life-Threatening, Hospitalization, Other)
  Sender: FDA-Public Use
  Company Number: GB-ELI_LILLY_AND_COMPANY-GB201211001471

PATIENT
  Age: 73 Year
  Sex: Female
  Weight: 84.8 kg

DRUGS (9)
  1. EXENATIDE [Suspect]
     Indication: DIABETES MELLITUS
     Dosage: 5 ug, UNK
     Route: 058
     Dates: start: 20120806
  2. EXENATIDE [Suspect]
     Dosage: 10 ug, UNK
     Route: 058
     Dates: start: 20121007
  3. ASPIRIN [Concomitant]
     Indication: CARDIOVASCULAR DISORDER
     Dosage: 75 mg, UNK
     Route: 048
     Dates: start: 200306
  4. BEZAFIBRATE [Concomitant]
     Indication: DIABETES MELLITUS
     Dosage: 400 mg, UNK
     Route: 048
     Dates: start: 20120516
  5. DIAZEPAM [Concomitant]
     Indication: ANXIETY
     Dosage: 2 mg, qd
     Route: 048
     Dates: start: 20040712
  6. EPANUTIN [Concomitant]
     Indication: EPILEPSY
     Dosage: 100 mg, bid
     Route: 048
     Dates: start: 19890502
  7. GLICLAZIDE [Concomitant]
     Indication: DIABETES MELLITUS
     Dosage: 160 mg, bid
     Route: 048
  8. METFORMIN [Concomitant]
     Indication: DIABETES MELLITUS
     Dosage: 1 g, UNK
     Route: 048
     Dates: start: 20060927
  9. METFORMIN [Concomitant]
     Dosage: 500 mg, UNK
     Route: 048
     Dates: start: 20060927

REACTIONS (6)
  - Multi-organ failure [Fatal]
  - Acute myocardial infarction [Fatal]
  - Diabetes mellitus [Fatal]
  - Circulatory collapse [Not Recovered/Not Resolved]
  - Cardiac failure congestive [Not Recovered/Not Resolved]
  - Malaise [Not Recovered/Not Resolved]
